FAERS Safety Report 5040801-2 (Version None)
Quarter: 2006Q2

REPORT INFORMATION
  Report Type: 
  Country: None (occurrence: None)
  Receive Date: 20060630
  Receipt Date: 20060630
  Transmission Date: 20061013
  Serious: Yes (Hospitalization)
  Sender: FDA-Public Use
  Company Number: None

PATIENT
  Age: 64 Year
  Sex: Male
  Weight: 104.3 kg

DRUGS (1)
  1. INDOMETHACIN [Suspect]
     Indication: GOUT
     Dosage: 50MG   TID   PO
     Route: 048
     Dates: start: 20060619

REACTIONS (9)
  - ABDOMINAL PAIN UPPER [None]
  - BACTERIAL INFECTION [None]
  - FAECES DISCOLOURED [None]
  - GASTRIC ULCER [None]
  - GASTROINTESTINAL HAEMORRHAGE [None]
  - GASTROINTESTINAL INFECTION [None]
  - HAEMATOCHEZIA [None]
  - LEUKOCYTOSIS [None]
  - ULCER [None]
